FAERS Safety Report 19667754 (Version 1)
Quarter: 2021Q3

REPORT INFORMATION
  Report Type: Spontaneous
  Country: US (occurrence: US)
  Receive Date: 20210806
  Receipt Date: 20210806
  Transmission Date: 20211014
  Serious: No
  Sender: FDA-Public Use
  Company Number: US-AURINIA PHARMACEUTICALS INC.-AUR-000176

PATIENT
  Age: 36 Year
  Sex: Female

DRUGS (1)
  1. LUPKYNIS [Suspect]
     Active Substance: VOCLOSPORIN
     Indication: LUPUS NEPHRITIS
     Dosage: 23.7 MILLIGRAM, BID
     Route: 048
     Dates: start: 20210608

REACTIONS (8)
  - Heart rate irregular [Unknown]
  - Intentional dose omission [Unknown]
  - Oropharyngeal discomfort [Unknown]
  - Tremor [Unknown]
  - Palpitations [Unknown]
  - Chest pain [Not Recovered/Not Resolved]
  - Dysphagia [Unknown]
  - Neck pain [Unknown]

NARRATIVE: CASE EVENT DATE: 202106
